FAERS Safety Report 4754467-X (Version None)
Quarter: 2005Q3

REPORT INFORMATION
  Report Type: 
  Country: None (occurrence: None)
  Receive Date: 20050829
  Receipt Date: 20040831
  Transmission Date: 20060218
  Serious: No
  Sender: FDA-Public Use
  Company Number: US-GLAXOSMITHKLINE-A0524081A

PATIENT
  Age: 40 Year
  Sex: Male

DRUGS (3)
  1. ZOVIRAX [Suspect]
     Dosage: 400MG PER DAY
     Route: 048
  2. B12 [Concomitant]
  3. FOLIC ACID [Concomitant]

REACTIONS (2)
  - RED BLOOD CELL COUNT DECREASED [None]
  - WHITE BLOOD CELL COUNT DECREASED [None]
